FAERS Safety Report 24005383 (Version 1)
Quarter: 2024Q2

REPORT INFORMATION
  Report Type: Spontaneous
  Country: US (occurrence: None)
  Receive Date: 20240622
  Receipt Date: 20240622
  Transmission Date: 20240716
  Serious: Yes (Hospitalization)
  Sender: FDA-Public Use
  Company Number: None

PATIENT
  Sex: Male
  Weight: 109.8 kg

DRUGS (4)
  1. CYTARABINE [Suspect]
     Active Substance: CYTARABINE
  2. DASATINIB [Concomitant]
     Active Substance: DASATINIB
  3. DEXAMETHASONE [Concomitant]
     Active Substance: DEXAMETHASONE
  4. METHOTREXATE [Concomitant]
     Active Substance: METHOTREXATE

REACTIONS (8)
  - Dyspnoea [None]
  - Oropharyngeal pain [None]
  - Febrile neutropenia [None]
  - Sinus tachycardia [None]
  - Blood pressure increased [None]
  - Atelectasis [None]
  - SARS-CoV-2 test positive [None]
  - Haemoglobin decreased [None]

NARRATIVE: CASE EVENT DATE: 20240620
